FAERS Safety Report 8814995 (Version 1)
Quarter: 2012Q4

REPORT INFORMATION
  Report Type: 
  Country: US (occurrence: US)
  Receive Date: 20120928
  Receipt Date: 20120928
  Transmission Date: 20130627
  Serious: Yes (Life-Threatening)
  Sender: FDA-Public Use
  Company Number: PHEH2012US018604

PATIENT
  Sex: Male

DRUGS (1)
  1. FOCALIN [Suspect]

REACTIONS (2)
  - Obstructive airways disorder [Unknown]
  - Hypersensitivity [Unknown]
